FAERS Safety Report 7516486-X (Version None)
Quarter: 2011Q2

REPORT INFORMATION
  Report Type: 
  Country: None (occurrence: None)
  Receive Date: 20110601
  Receipt Date: 20110502
  Transmission Date: 20111010
  Serious: Yes (Hospitalization)
  Sender: FDA-Public Use
  Company Number: A0898278A

PATIENT
  Age: 65 Year
  Sex: Female

DRUGS (1)
  1. ROSIGLITAZONE MALEATE [Suspect]
     Indication: DIABETES MELLITUS
     Route: 048
     Dates: start: 20030101, end: 20050101

REACTIONS (5)
  - BLINDNESS [None]
  - CARDIAC FAILURE [None]
  - ARTHROPATHY [None]
  - RENAL FAILURE [None]
  - AMNESIA [None]
